FAERS Safety Report 10568305 (Version 1)
Quarter: 2014Q4

REPORT INFORMATION
  Report Type: Spontaneous
  Country: None (occurrence: None)
  Receive Date: 20141024
  Receipt Date: 20141024
  Transmission Date: 20150529
  Serious: No
  Sender: FDA-Public Use
  Company Number: 1436317

PATIENT
  Age: 43 Year
  Sex: Female

DRUGS (1)
  1. ZELBORAF [Suspect]
     Active Substance: VEMURAFENIB
     Indication: PRODUCT USED FOR UNKNOWN INDICATION
     Dosage: 4 TABLETS (240 MG, 1 IN 12 HR), ORAL
     Route: 048

REACTIONS (4)
  - Joint swelling [None]
  - Arthralgia [None]
  - Rash [None]
  - Erythema [None]
